APPROVED DRUG PRODUCT: GLUCAGEN
Active Ingredient: GLUCAGON HYDROCHLORIDE
Strength: EQ 1MG BASE/VIAL **Federal Register determination that product was not discontinued or withdrawn for safety or effectiveness reasons**
Dosage Form/Route: POWDER;INTRAMUSCULAR, INTRAVENOUS, SUBCUTANEOUS
Application: N020918 | Product #002
Applicant: NOVO NORDISK PHARMACEUTICALS INC
Approved: Jun 22, 1998 | RLD: Yes | RS: No | Type: DISCN